FAERS Safety Report 8281248-5 (Version None)
Quarter: 2012Q2

REPORT INFORMATION
  Report Type: 
  Country: None (occurrence: None)
  Receive Date: 20120413
  Receipt Date: 20120405
  Transmission Date: 20120825
  Serious: Yes (Death, Hospitalization, Other)
  Sender: FDA-Public Use
  Company Number: US-BRISTOL-MYERS SQUIBB COMPANY-15400070

PATIENT
  Age: 69 Year
  Sex: Male
  Weight: 74 kg

DRUGS (20)
  1. PROCHLORPERAZINE [Concomitant]
     Indication: VOMITING
     Dosage: ONGOING
     Dates: start: 20101020
  2. MORPHINE [Concomitant]
  3. MOXIFLOXACIN [Concomitant]
  4. TRIAMCINOLONE [Concomitant]
     Dates: start: 20081215
  5. VITAMIN B-12 [Concomitant]
     Indication: PROPHYLAXIS
     Dates: start: 20101118
  6. AMIODARONE HCL [Concomitant]
  7. SENNOSIDE A+B [Concomitant]
  8. PEMETREXED DISODIUM [Suspect]
     Indication: NON-SMALL CELL LUNG CANCER
     Route: 042
     Dates: start: 20101020, end: 20101020
  9. ASPIRIN [Concomitant]
     Dates: start: 20060608
  10. METOPROLOL TARTRATE [Concomitant]
     Indication: BLOOD PRESSURE
     Route: 048
     Dates: start: 20100714
  11. FOLIC ACID [Concomitant]
     Indication: PROPHYLAXIS
     Dates: start: 20101118
  12. DOCUSATE [Concomitant]
  13. LORATADINE [Concomitant]
     Indication: HYPERSENSITIVITY
     Dosage: ONGOING
     Dates: start: 20100714
  14. ALBUTEROL [Concomitant]
  15. OMEPRAZOLE [Concomitant]
     Indication: GASTROOESOPHAGEAL REFLUX DISEASE
     Dosage: ONGOING
     Dates: start: 20100716
  16. SIMVASTATIN [Concomitant]
     Indication: BLOOD CHOLESTEROL
     Route: 048
     Dates: start: 20100716
  17. LORAZEPAM [Concomitant]
  18. CARBOPLATIN [Suspect]
     Indication: NON-SMALL CELL LUNG CANCER
     Dosage: 1 DF=6DF AUC
     Route: 042
     Dates: start: 20101020, end: 20101020
  19. PROCHLORPERAZINE [Concomitant]
     Indication: NAUSEA
     Dosage: ONGOING
     Dates: start: 20101020
  20. VARDENAFIL HYDROCHLORIDE (LEVITRA) [Concomitant]
     Dates: start: 20100714

REACTIONS (10)
  - NEOPLASM MALIGNANT [None]
  - NODAL ARRHYTHMIA [None]
  - HAEMOPTYSIS [None]
  - CHEST PAIN [None]
  - SMALL INTESTINAL OBSTRUCTION [None]
  - PLEURAL EFFUSION [None]
  - TROPONIN INCREASED [None]
  - ASPIRATION [None]
  - SUPRAVENTRICULAR TACHYCARDIA [None]
  - ACTIVATED PARTIAL THROMBOPLASTIN TIME PROLONGED [None]
